FAERS Safety Report 9322502 (Version 1)
Quarter: 2013Q2

REPORT INFORMATION
  Report Type: Spontaneous
  Country: GB (occurrence: GB)
  Receive Date: 20130531
  Receipt Date: 20130531
  Transmission Date: 20140414
  Serious: Yes (Disabling)
  Sender: FDA-Public Use
  Company Number: GB-ASTRAZENECA-2013SE36299

PATIENT
  Age: 79 Year
  Sex: Male
  Weight: 104 kg

DRUGS (3)
  1. FELODIPINE [Suspect]
     Route: 048
     Dates: start: 20121218
  2. ATENOLOL [Concomitant]
     Dates: start: 20121218, end: 20130503
  3. SIMVASTATIN [Concomitant]
     Dates: start: 20130228

REACTIONS (1)
  - Oedema [Unknown]
